FAERS Safety Report 5702539-5 (Version None)
Quarter: 2008Q2

REPORT INFORMATION
  Report Type: 
  Country: None (occurrence: None)
  Receive Date: 20080411
  Receipt Date: 20070720
  Transmission Date: 20081010
  Serious: No
  Sender: FDA-Public Use
  Company Number: US-ASTRAZENECA-2002UW02703

PATIENT
  Age: 48 Year
  Sex: Male
  Weight: 147.7 kg

DRUGS (1)
  1. TENORMIN [Suspect]
     Indication: HYPERTENSION
     Route: 048

REACTIONS (6)
  - AMNESIA [None]
  - ERECTILE DYSFUNCTION [None]
  - FATIGUE [None]
  - HYPOTENSION [None]
  - PALPITATIONS [None]
  - TACHYCARDIA [None]
